FAERS Safety Report 25540985 (Version 5)
Quarter: 2025Q3

REPORT INFORMATION
  Report Type: Spontaneous
  Country: EU (occurrence: EU)
  Receive Date: 20250710
  Receipt Date: 20250811
  Transmission Date: 20251021
  Serious: Yes (Life-Threatening, Hospitalization)
  Sender: MERCK SHARP & DOHME LLC
  Company Number: EU-009507513-2304259

PATIENT
  Age: 72 Year
  Sex: Male

DRUGS (1)
  1. PEMBROLIZUMAB [Suspect]
     Active Substance: PEMBROLIZUMAB
     Indication: Malignant melanoma stage II
     Dosage: 200 MG, Q3W
     Route: 042
     Dates: start: 2024

REACTIONS (1)
  - Myocarditis-myositis-myasthenia gravis overlap syndrome [Recovered/Resolved]

NARRATIVE: CASE EVENT DATE: 20240101
